FAERS Safety Report 24747267 (Version 1)
Quarter: 2024Q4

REPORT INFORMATION
  Report Type: Spontaneous
  Country: PL (occurrence: PL)
  Receive Date: 20241218
  Receipt Date: 20241218
  Transmission Date: 20250115
  Serious: Yes (Life-Threatening, Other)
  Sender: DAIICHI
  Company Number: PL-AstraZeneca-CH-00768454A

PATIENT
  Sex: Female

DRUGS (1)
  1. TRASTUZUMAB DERUXTECAN [Suspect]
     Active Substance: TRASTUZUMAB DERUXTECAN
     Indication: Breast cancer
     Dosage: UNK
     Route: 041
     Dates: start: 20210614, end: 202207

REACTIONS (2)
  - Interstitial lung abnormality [Unknown]
  - Interstitial lung disease [Unknown]
